FAERS Safety Report 4296491-X (Version None)
Quarter: 2004Q1

REPORT INFORMATION
  Report Type: 
  Country: None (occurrence: None)
  Receive Date: 20040129
  Receipt Date: 20030107
  Transmission Date: 20041129
  Serious: No
  Sender: FDA-Public Use
  Company Number: 200308581

PATIENT
  Sex: Male

DRUGS (1)
  1. ALBUMINAR-25 [Suspect]

REACTIONS (1)
  - BACK PAIN [None]
